FAERS Safety Report 17807112 (Version 1)
Quarter: 2020Q2

REPORT INFORMATION
  Report Type: Spontaneous
  Country: US (occurrence: US)
  Receive Date: 20200520
  Receipt Date: 20200520
  Transmission Date: 20200714
  Serious: Yes (Hospitalization)
  Sender: FDA-Public Use
  Company Number: None

PATIENT
  Age: 51 Year
  Sex: Female

DRUGS (23)
  1. BUSPIRONE [Concomitant]
     Active Substance: BUSPIRONE HYDROCHLORIDE
  2. CYCLOBENZAPR [Concomitant]
     Active Substance: CYCLOBENZAPRINE
  3. TEMAZEPAM. [Concomitant]
     Active Substance: TEMAZEPAM
  4. PERCOCET [Concomitant]
     Active Substance: ACETAMINOPHEN\OXYCODONE HYDROCHLORIDE
  5. ADDERALL [Concomitant]
     Active Substance: AMPHETAMINE ASPARTATE\AMPHETAMINE SULFATE\DEXTROAMPHETAMINE SACCHARATE\DEXTROAMPHETAMINE SULFATE
  6. ATENOLOL. [Concomitant]
     Active Substance: ATENOLOL
  7. XELJANZ [Suspect]
     Active Substance: TOFACITINIB CITRATE
     Indication: RHEUMATOID ARTHRITIS
     Route: 048
     Dates: start: 20191011
  8. CALCIUM [Concomitant]
     Active Substance: CALCIUM
  9. VITAMIN D3 [Concomitant]
     Active Substance: CHOLECALCIFEROL
  10. AMPHET [Concomitant]
  11. DICLOFENAC [Concomitant]
     Active Substance: DICLOFENAC
  12. LISINOPRIL. [Concomitant]
     Active Substance: LISINOPRIL
  13. ROSUVASTATIN. [Concomitant]
     Active Substance: ROSUVASTATIN
  14. ACTEMRA [Suspect]
     Active Substance: TOCILIZUMAB
     Indication: RHEUMATOID ARTHRITIS
     Dosage: ?          OTHER FREQUENCY:EVERY OTHER WEEK;?
     Route: 030
     Dates: start: 20200417
  15. FENTANYL. [Concomitant]
     Active Substance: FENTANYL
  16. LYRICA [Concomitant]
     Active Substance: PREGABALIN
  17. PREDNISONE. [Concomitant]
     Active Substance: PREDNISONE
  18. TRAZODONE [Concomitant]
     Active Substance: TRAZODONE HYDROCHLORIDE
  19. CORTISONE [Concomitant]
     Active Substance: CORTISONE
  20. DULOXETINE. [Concomitant]
     Active Substance: DULOXETINE
  21. HORIZANT [Concomitant]
     Active Substance: GABAPENTIN ENACARBIL
  22. METHOTREXATE. [Concomitant]
     Active Substance: METHOTREXATE
  23. OXYCODONE [Concomitant]
     Active Substance: OXYCODONE

REACTIONS (4)
  - Haemorrhagic stroke [None]
  - Pain in extremity [None]
  - Mental status changes [None]
  - Blood pressure increased [None]

NARRATIVE: CASE EVENT DATE: 20200417
